FAERS Safety Report 19847382 (Version 1)
Quarter: 2021Q3

REPORT INFORMATION
  Report Type: Spontaneous
  Country: DE (occurrence: DE)
  Receive Date: 20210917
  Receipt Date: 20210917
  Transmission Date: 20211014
  Serious: Yes (Death, Hospitalization)
  Sender: FDA-Public Use
  Company Number: DE-TEVA-2021-DE-1952458

PATIENT
  Age: 75 Year
  Sex: Male
  Weight: 90 kg

DRUGS (17)
  1. LEVOTHYROXIN?NATRIUM [Concomitant]
     Active Substance: LEVOTHYROXINE SODIUM
     Dosage: 200 MICROGRAM DAILY;  1?0?0?0
  2. INSULIN GLARGIN [Concomitant]
     Active Substance: INSULIN GLARGINE
     Dosage: SCHEME
  3. ROSUVASTATIN. [Concomitant]
     Active Substance: ROSUVASTATIN
     Dosage: 20 MILLIGRAM DAILY;   0?0?1?0
  4. CLOPIDOGREL [Concomitant]
     Active Substance: CLOPIDOGREL BISULFATE
     Dosage: 75 MILLIGRAM DAILY;   1?0?0?0
  5. HYDROCORTISON [HYDROCORTISONE] [Suspect]
     Active Substance: HYDROCORTISONE
     Dosage: 10 MG, 2?0?1?0
  6. CALCIUMACETAT [Concomitant]
     Active Substance: CALCIUM ACETATE
     Dosage: 950 MILLIGRAM DAILY;   0?1?0?0
  7. INSULIN LISPRO [Concomitant]
     Active Substance: INSULIN LISPRO
     Dosage: SCHEME
  8. LATANOPROST. [Concomitant]
     Active Substance: LATANOPROST
     Dosage: 1 DOSAGE FORMS DAILY; 0?0?1?0
  9. BISOPROLOL [Concomitant]
     Active Substance: BISOPROLOL
     Dosage: 2.5 MILLIGRAM DAILY;  1?0?0?0
  10. EISEN(III)?KOMPLEX [Concomitant]
     Dosage: 40 MG, SCHEME
  11. TESTOSTERON [Concomitant]
     Active Substance: TESTOSTERONE
     Dosage: 250 MG, SCHEME
  12. RAMIPRIL. [Concomitant]
     Active Substance: RAMIPRIL
     Dosage: 5 MILLIGRAM DAILY;  1?0?0?0
  13. TORASEMID [Concomitant]
     Active Substance: TORSEMIDE
     Dosage: 200 MG, SCHEME
  14. ACETYLSALICYLSAURE [Concomitant]
     Active Substance: ASPIRIN
     Dosage: 100 MILLIGRAM DAILY;  1?0?0?0
  15. PANTOPRAZOL [Concomitant]
     Active Substance: PANTOPRAZOLE SODIUM
     Dosage: 40 MILLIGRAM DAILY;  1?0?0?0
  16. COLECALCIFEROL (VITAMIN D)/IBANDRONSAURE [Concomitant]
     Dosage: 20000 IU, SCHEME
  17. EPOETIN ALFA [Concomitant]
     Active Substance: ERYTHROPOIETIN
     Dosage: 4000 IU, SCHEME

REACTIONS (13)
  - Disorientation [Unknown]
  - Oedema peripheral [Unknown]
  - General physical health deterioration [Unknown]
  - Anaemia [Unknown]
  - Condition aggravated [Unknown]
  - Systemic infection [Unknown]
  - Electrocardiogram abnormal [Unknown]
  - Pyrexia [Unknown]
  - Tachypnoea [Unknown]
  - Renal impairment [Unknown]
  - Hypertension [Unknown]
  - Tachycardia [Unknown]
  - Hyperglycaemia [Unknown]
